FAERS Safety Report 18730780 (Version 1)
Quarter: 2021Q1

REPORT INFORMATION
  Report Type: Spontaneous
  Country: US (occurrence: US)
  Receive Date: 20210112
  Receipt Date: 20210112
  Transmission Date: 20210419
  Serious: No
  Sender: FDA-Public Use
  Company Number: US-PFIZER INC-2021012983

PATIENT
  Age: 65 Year
  Sex: Female

DRUGS (1)
  1. PREGABALIN. [Suspect]
     Active Substance: PREGABALIN
     Dosage: 3 DF (I HAVE TO TAKE 3 AND DOES NOT TAKE AWAY THE SYMPTOMS)

REACTIONS (2)
  - Drug ineffective [Unknown]
  - Overweight [Unknown]
